FAERS Safety Report 24111737 (Version 1)
Quarter: 2024Q3

REPORT INFORMATION
  Report Type: Spontaneous
  Country: ES (occurrence: ES)
  Receive Date: 20240718
  Receipt Date: 20240718
  Transmission Date: 20241016
  Serious: Yes (Other)
  Sender: PHARMACEUTICAL ASSOC
  Company Number: ES-PAIPHARMA-2024-ES-000072

PATIENT
  Age: 41 Year
  Sex: Female

DRUGS (1)
  1. FLUOXETINE [Suspect]
     Active Substance: FLUOXETINE HYDROCHLORIDE
     Indication: Adjustment disorder
     Dosage: 120 MG DAILY

REACTIONS (1)
  - Colitis microscopic [Unknown]
